FAERS Safety Report 9474649 (Version 11)
Quarter: 2014Q2

REPORT INFORMATION
  Report Type: Report from Study
  Country: US (occurrence: US)
  Receive Date: 20130823
  Receipt Date: 20140522
  Transmission Date: 20141212
  Serious: Yes (Hospitalization, Other)
  Sender: FDA-Public Use
  Company Number: US-PFIZER INC-2013239159

PATIENT
  Age: 68 Year
  Sex: Male
  Weight: 85.26 kg

DRUGS (19)
  1. IBUPROFEN [Suspect]
     Indication: OSTEOARTHRITIS
     Dosage: 800 MG, 3X/DAY
     Route: 048
     Dates: start: 20130215, end: 20130707
  2. IBUPROFEN [Suspect]
     Indication: RHEUMATOID ARTHRITIS
  3. NEXIUM [Concomitant]
     Indication: PROPHYLAXIS
     Dosage: 20 MG, QD
     Route: 048
     Dates: start: 20130215, end: 20130707
  4. OMEPRAZOLE [Concomitant]
     Indication: PROPHYLAXIS
     Dosage: 40 MG, DAILY
     Route: 048
     Dates: start: 20130710
  5. TRAMADOL HCL [Concomitant]
     Indication: PAIN
     Dosage: 50 MG, AS NEEDED
     Route: 048
     Dates: start: 20130710
  6. TRAMADOL HCL [Concomitant]
     Indication: ARTHRALGIA
  7. ISOSORBIDE MONO [Concomitant]
     Indication: MYOCARDIAL INFARCTION
     Dosage: 30 MG, DAILY
     Route: 048
     Dates: start: 20070117, end: 20140210
  8. ISOSORBIDE MONO [Concomitant]
     Indication: VASODILATATION
  9. UNIVASC [Concomitant]
     Indication: HYPERTENSION
     Dosage: 7.5 MG, DAILY
     Route: 048
     Dates: start: 20070117, end: 20140210
  10. HYDROCHLOROTHIAZIDE [Concomitant]
     Indication: DIURETIC THERAPY
     Dosage: 12.5 MG, QD
     Route: 048
     Dates: start: 20070117
  11. HYDROCHLOROTHIAZIDE [Concomitant]
     Indication: HYPERTENSION
  12. SIMVASTATIN [Concomitant]
     Indication: HYPERLIPIDAEMIA
     Dosage: 40 MG, DAILY
     Route: 048
     Dates: start: 20070117
  13. SIMVASTATIN [Concomitant]
     Indication: BLOOD CHOLESTEROL DECREASED
  14. METOPROLOL TARTRATE [Concomitant]
     Indication: MYOCARDIAL INFARCTION
     Dosage: 50 MG, 2X/DAY
     Route: 048
     Dates: start: 20070117
  15. METOPROLOL TARTRATE [Concomitant]
     Indication: HYPERTENSION
  16. ASPIRIN [Concomitant]
     Indication: ANTICOAGULANT THERAPY
     Dosage: 81 MG, QD
     Route: 048
     Dates: start: 20091204
  17. CLOPIDOGREL [Concomitant]
     Indication: MYOCARDIAL INFARCTION
     Dosage: 75 MG, QD
     Route: 048
     Dates: start: 20070117, end: 20130815
  18. FUROSEMIDE [Concomitant]
     Indication: DIURETIC THERAPY
     Dosage: 40 MG, 2X/WEEK
     Route: 048
     Dates: start: 20140210
  19. HYDROCODONE W/ACETAMINOPHEN [Concomitant]
     Indication: PAIN
     Dosage: 1 DF (7.5/325 MG), AS NEEDED
     Route: 048
     Dates: start: 20140210

REACTIONS (3)
  - Oesophageal carcinoma [Recovered/Resolved with Sequelae]
  - Nodule [Not Recovered/Not Resolved]
  - Delirium tremens [Recovered/Resolved]
